FAERS Safety Report 12456051 (Version 1)
Quarter: 2016Q2

REPORT INFORMATION
  Report Type: Spontaneous
  Country: CA (occurrence: CA)
  Receive Date: 20160610
  Receipt Date: 20160610
  Transmission Date: 20160815
  Serious: Yes (Other)
  Sender: FDA-Public Use
  Company Number: CA-CONCORDIA PHARMACEUTICALS INC.-CO-PL-CA-2015-003

PATIENT
  Age: 55 Year
  Sex: Male

DRUGS (1)
  1. PLAQUENIL [Suspect]
     Active Substance: HYDROXYCHLOROQUINE SULFATE
     Indication: PRODUCT USED FOR UNKNOWN INDICATION
     Route: 048
     Dates: start: 201412

REACTIONS (6)
  - Vision blurred [Unknown]
  - Drug ineffective [Unknown]
  - Blepharospasm [Unknown]
  - Ocular hyperaemia [Unknown]
  - Depressed mood [Unknown]
  - Adverse reaction [Unknown]
